FAERS Safety Report 23016160 (Version 1)
Quarter: 2023Q4

REPORT INFORMATION
  Report Type: Spontaneous
  Country: CZ (occurrence: CZ)
  Receive Date: 20231002
  Receipt Date: 20231002
  Transmission Date: 20240110
  Serious: Yes (Death, Other)
  Sender: FDA-Public Use
  Company Number: CZ-009507513-2310CZE000229

PATIENT
  Age: 66 Year
  Sex: Female

DRUGS (3)
  1. KEYTRUDA [Suspect]
     Active Substance: PEMBROLIZUMAB
     Indication: Non-small cell lung cancer
     Dosage: 7 CYCLES OF KEYTRUDA IN TOTAL
     Dates: start: 20221006, end: 20230313
  2. CARBOPLATIN [Suspect]
     Active Substance: CARBOPLATIN
     Indication: Non-small cell lung cancer
     Dates: start: 20221006
  3. PACLITAXEL [Suspect]
     Active Substance: PACLITAXEL
     Indication: Non-small cell lung cancer
     Dates: start: 20221006

REACTIONS (11)
  - Death [Fatal]
  - Malignant neoplasm progression [Unknown]
  - Leukopenia [Unknown]
  - Thrombocytopenia [Unknown]
  - Osteolysis [Unknown]
  - Gallbladder disorder [Unknown]
  - Cholelithiasis [Unknown]
  - Liver disorder [Unknown]
  - General physical health deterioration [Unknown]
  - Chest pain [Unknown]
  - Inappropriate schedule of product administration [Unknown]

NARRATIVE: CASE EVENT DATE: 20221006
